FAERS Safety Report 14681648 (Version 1)
Quarter: 2018Q1

REPORT INFORMATION
  Report Type: Spontaneous
  Country: CN (occurrence: CN)
  Receive Date: 20180326
  Receipt Date: 20180326
  Transmission Date: 20180509
  Serious: Yes (Other)
  Sender: FDA-Public Use
  Company Number: CN-PFIZER INC-2018122399

PATIENT
  Age: 12 Year

DRUGS (2)
  1. ZOLOFT [Suspect]
     Active Substance: SERTRALINE HYDROCHLORIDE
     Dosage: 1 TABLET, 1X/DAY
     Route: 048
  2. ZOLOFT [Suspect]
     Active Substance: SERTRALINE HYDROCHLORIDE
     Dosage: 0.5 TABLET, 1X/DAY
     Route: 048

REACTIONS (8)
  - Hallucination [Unknown]
  - Epilepsy [Unknown]
  - Asphyxia [Recovered/Resolved]
  - Foaming at mouth [Recovered/Resolved]
  - Derealisation [Unknown]
  - Eye disorder [Recovered/Resolved]
  - Headache [Unknown]
  - Dizziness [Unknown]
